FAERS Safety Report 23138481 (Version 3)
Quarter: 2023Q4

REPORT INFORMATION
  Report Type: Spontaneous
  Country: CN (occurrence: CN)
  Receive Date: 20231102
  Receipt Date: 20231115
  Transmission Date: 20240109
  Serious: Yes (Other)
  Sender: FDA-Public Use
  Company Number: CN-UCBSA-2023051733

PATIENT
  Age: 18 Year
  Weight: 83 kg

DRUGS (5)
  1. KEPPRA [Suspect]
     Active Substance: LEVETIRACETAM
     Indication: Epilepsy
     Dosage: 250 MILLIGRAM, 2X/DAY (BID)
     Route: 048
     Dates: start: 2011
  2. KEPPRA [Suspect]
     Active Substance: LEVETIRACETAM
     Dosage: UNK
     Route: 048
     Dates: start: 2019
  3. KEPPRA [Suspect]
     Active Substance: LEVETIRACETAM
     Dosage: UNK
     Route: 048
     Dates: start: 202212, end: 202310
  4. KEPPRA [Suspect]
     Active Substance: LEVETIRACETAM
     Dosage: 1125 MILLIGRAM, 2X/DAY (BID), ONCE IN THE MORNING AND EVENING
     Route: 048
     Dates: start: 202310
  5. CLOBAZAM [Concomitant]
     Active Substance: CLOBAZAM
     Indication: Product used for unknown indication
     Dosage: 5MG IN THE MORNING AND EVENING

REACTIONS (3)
  - Seizure [Unknown]
  - Suspected counterfeit product [Unknown]
  - Therapeutic product ineffective [Unknown]

NARRATIVE: CASE EVENT DATE: 20190101
